FAERS Safety Report 10029778 (Version 1)
Quarter: 2014Q1

REPORT INFORMATION
  Report Type: Spontaneous
  Country: US (occurrence: None)
  Receive Date: 20140321
  Receipt Date: 20140321
  Transmission Date: 20141002
  Serious: Yes (Hospitalization)
  Sender: FDA-Public Use
  Company Number: None

PATIENT
  Age: 52 Year
  Sex: Male
  Weight: 83.01 kg

DRUGS (8)
  1. RANIBIZUMAB [Suspect]
     Indication: DIABETIC RETINAL OEDEMA
     Dosage: 0.05ML MONTLY INTRAVITR
     Dates: start: 20140210
  2. RANIBIZUMAB [Suspect]
     Dosage: 0.05ML MONTLY INTRAVITR
     Dates: start: 20140210
  3. FUROSEMIDE [Concomitant]
  4. CLIOXAN OPHTHALMIC [Concomitant]
  5. LIPITOR [Concomitant]
  6. LISINOPRIL [Concomitant]
  7. METFORMIN [Concomitant]
  8. GABAPENTIN [Concomitant]

REACTIONS (8)
  - Asthenia [None]
  - Nausea [None]
  - Vomiting [None]
  - Diarrhoea [None]
  - Troponin increased [None]
  - Coronary artery disease [None]
  - Myocardial ischaemia [None]
  - Myocardial infarction [None]
